FAERS Safety Report 5854353-8 (Version None)
Quarter: 2008Q3

REPORT INFORMATION
  Report Type: 
  Country: None (occurrence: None)
  Receive Date: 20080822
  Receipt Date: 20080819
  Transmission Date: 20090109
  Serious: No
  Sender: FDA-Public Use
  Company Number: US-BOEHRINGER INGELHEIM GMBH, GERMANY-2008-BP-10125BP

PATIENT
  Age: 70 Year
  Sex: Female

DRUGS (10)
  1. SPIRIVA [Suspect]
     Indication: CHRONIC OBSTRUCTIVE PULMONARY DISEASE
     Route: 055
     Dates: start: 20061016
  2. SPIRIVA [Suspect]
     Indication: LUNG DISORDER
  3. AVAPRO [Concomitant]
     Indication: HYPERTENSION
     Dates: start: 20060901
  4. PLAVIX [Concomitant]
     Indication: STENT PLACEMENT
  5. CRESTOR [Concomitant]
  6. ZETIA [Concomitant]
  7. ALBUTEROL [Concomitant]
     Route: 055
     Dates: start: 20000101
  8. LUNESTA [Concomitant]
     Dates: start: 20061127
  9. PROTONIX [Concomitant]
     Dates: start: 20070928
  10. BONIVA [Concomitant]
     Dates: start: 20070928

REACTIONS (1)
  - GINGIVAL DISORDER [None]
